FAERS Safety Report 5809633-9 (Version None)
Quarter: 2008Q3

REPORT INFORMATION
  Report Type: 
  Country: None (occurrence: None)
  Receive Date: 20080711
  Receipt Date: 20080711
  Transmission Date: 20090109
  Serious: No
  Sender: FDA-Public Use
  Company Number: None

PATIENT
  Age: 73 Year
  Sex: Male
  Weight: 95.2554 kg

DRUGS (1)
  1. CIPRO [Suspect]
     Indication: DIVERTICULITIS
     Dosage: PO
     Route: 048
     Dates: start: 20050224, end: 20050304

REACTIONS (6)
  - CONNECTIVE TISSUE DISORDER [None]
  - FOOT DEFORMITY [None]
  - HALLUCINATION [None]
  - MALAISE [None]
  - PAIN [None]
  - UNEVALUABLE EVENT [None]
